FAERS Safety Report 4525010-5 (Version None)
Quarter: 2004Q4

REPORT INFORMATION
  Report Type: 
  Country: None (occurrence: None)
  Receive Date: 20041117
  Receipt Date: 20030829
  Transmission Date: 20050328
  Serious: Yes (Other)
  Sender: FDA-Public Use
  Company Number: C2003-2272.01

PATIENT
  Age: 29 Year
  Sex: Male

DRUGS (4)
  1. CLOZAPINE [Suspect]
     Indication: SCHIZOPHRENIA
     Dosage: 300 Q AM, 200 Q NOON, 300 Q PM, ORAL
     Route: 048
     Dates: start: 20020924, end: 20030826
  2. CLOZAPINE [Suspect]
     Indication: SCHIZOPHRENIA
     Dosage: 300 Q AM, 200 Q NOON, 300 Q PM, ORAL
     Route: 048
     Dates: start: 20030827
  3. DIVALPROEX SODIUM [Concomitant]
  4. LITHIUM [Concomitant]

REACTIONS (1)
  - NEUTROPENIA [None]
